FAERS Safety Report 17979349 (Version 1)
Quarter: 2020Q3

REPORT INFORMATION
  Report Type: Spontaneous
  Country: FR (occurrence: FR)
  Receive Date: 20200703
  Receipt Date: 20200703
  Transmission Date: 20201103
  Serious: Yes (Hospitalization)
  Sender: FDA-Public Use
  Company Number: FR-TEVA-2020-FR-1794277

PATIENT
  Age: 80 Year
  Sex: Female
  Weight: 59 kg

DRUGS (12)
  1. TIORFAN 100 MG, GELULE [Concomitant]
     Active Substance: RACECADOTRIL
  2. CALCIDOSE [Concomitant]
  3. PANTOPRAZOLE [Suspect]
     Active Substance: PANTOPRAZOLE
     Indication: PRODUCT USED FOR UNKNOWN INDICATION
     Dosage: 40 MG
     Route: 048
  4. KARDEGIC [Concomitant]
     Active Substance: ASPIRIN DL-LYSINE
  5. ACIDE FOLIQUE [Concomitant]
     Active Substance: FOLIC ACID
  6. SERESTA 10 MG, COMPRIME [Concomitant]
     Active Substance: OXAZEPAM
  7. QUESTRAN [Suspect]
     Active Substance: CHOLESTYRAMINE
     Indication: DIARRHOEA
     Dosage: 1 DOSAGE FORM
     Route: 048
     Dates: end: 20200515
  8. NEBIVOLOL. [Concomitant]
     Active Substance: NEBIVOLOL
  9. SYMBICORT [Concomitant]
     Active Substance: BUDESONIDE\FORMOTEROL FUMARATE DIHYDRATE
  10. DIFFU K [Concomitant]
     Active Substance: POTASSIUM CHLORIDE
  11. ZYMAD [Concomitant]
     Active Substance: CHOLECALCIFEROL
  12. CYTEAL [Concomitant]
     Active Substance: CHLORHEXIDINE GLUCONATE\CHLOROCRESOL\HEXAMIDINE DIISETHIONATE

REACTIONS (2)
  - Hypomagnesaemia [Recovering/Resolving]
  - Hypocalcaemia [Recovered/Resolved]

NARRATIVE: CASE EVENT DATE: 202005
